FAERS Safety Report 23451882 (Version 1)
Quarter: 2024Q1

REPORT INFORMATION
  Report Type: Spontaneous
  Country: US (occurrence: None)
  Receive Date: 20240126
  Receipt Date: 20240126
  Transmission Date: 20240409
  Serious: Yes (Hospitalization, Disabling)
  Sender: FDA-Public Use
  Company Number: None

PATIENT
  Age: 78 Year
  Sex: Male
  Weight: 95.25 kg

DRUGS (6)
  1. MOUNJARO [Suspect]
     Active Substance: TIRZEPATIDE
     Indication: Type 2 diabetes mellitus
     Dosage: FREQUENCY : WEEKLY;?
     Route: 058
     Dates: start: 202307, end: 202310
  2. Humalog insulin pen [Concomitant]
  3. SIMVASTATIN [Concomitant]
     Active Substance: SIMVASTATIN
  4. LEVOTHYROXINE [Concomitant]
     Active Substance: LEVOTHYROXINE\LEVOTHYROXINE SODIUM
  5. C-Pac machine [Concomitant]
  6. Libre 2 [Concomitant]

REACTIONS (5)
  - Blood urea increased [None]
  - Blood creatinine increased [None]
  - Nephrolithiasis [None]
  - Dialysis [None]
  - Acute kidney injury [None]

NARRATIVE: CASE EVENT DATE: 20231001
